FAERS Safety Report 20145537 (Version 4)
Quarter: 2021Q4

REPORT INFORMATION
  Report Type: Spontaneous
  Country: US (occurrence: US)
  Receive Date: 20211203
  Receipt Date: 20211223
  Transmission Date: 20220303
  Serious: Yes (Other)
  Sender: FDA-Public Use
  Company Number: US-SLATE RUN PHARMACEUTICALS-21US000816

PATIENT

DRUGS (7)
  1. DESVENLAFAXINE SUCCINATE [Suspect]
     Active Substance: DESVENLAFAXINE SUCCINATE
     Indication: Major depression
     Dosage: 200 MILLIGRAM
     Route: 048
     Dates: start: 202111, end: 202111
  2. DESVENLAFAXINE SUCCINATE [Suspect]
     Active Substance: DESVENLAFAXINE SUCCINATE
     Dosage: 150 MILLIGRAM
     Route: 048
     Dates: start: 202111, end: 202111
  3. DESVENLAFAXINE SUCCINATE [Suspect]
     Active Substance: DESVENLAFAXINE SUCCINATE
     Dosage: 100 MILLIGRAM, QD
     Route: 048
     Dates: start: 2021, end: 2021
  4. DESVENLAFAXINE [Concomitant]
     Active Substance: DESVENLAFAXINE
     Indication: Major depression
     Dosage: UNK
     Route: 048
     Dates: start: 20211116
  5. DESVENLAFAXINE [Concomitant]
     Active Substance: DESVENLAFAXINE
     Dosage: 100 MILLIGRAM, QD
     Route: 048
  6. BUSPIRONE [Concomitant]
     Active Substance: BUSPIRONE HYDROCHLORIDE
     Indication: Anxiety
     Dosage: 10 MILLIGRAM, TID
     Route: 048
     Dates: start: 2011
  7. BUSPIRONE [Concomitant]
     Active Substance: BUSPIRONE HYDROCHLORIDE
     Indication: Depression

REACTIONS (3)
  - Major depression [Recovered/Resolved]
  - Drug ineffective [Not Recovered/Not Resolved]
  - Product substitution issue [Recovered/Resolved]

NARRATIVE: CASE EVENT DATE: 20210101
